FAERS Safety Report 14410890 (Version 1)
Quarter: 2018Q1

REPORT INFORMATION
  Report Type: Spontaneous
  Country: FR (occurrence: FR)
  Receive Date: 20180119
  Receipt Date: 20180119
  Transmission Date: 20180509
  Serious: Yes (Other)
  Sender: FDA-Public Use
  Company Number: FR-MERCK KGAA-2040366

PATIENT
  Age: 48 Year
  Sex: Female

DRUGS (1)
  1. NOVOTHYROX [Suspect]
     Active Substance: LEVOTHYROXINE SODIUM
     Indication: HYPOTHYROIDISM
     Route: 048
     Dates: start: 20170818, end: 20171021

REACTIONS (14)
  - Mood swings [Recovering/Resolving]
  - Vertigo [Recovering/Resolving]
  - Agitation [Recovering/Resolving]
  - Aggression [Recovering/Resolving]
  - Diffuse alopecia [Recovering/Resolving]
  - Asthenia [Recovering/Resolving]
  - Palpitations [Recovering/Resolving]
  - Crying [Recovering/Resolving]
  - Constipation [Recovering/Resolving]
  - Blood thyroid stimulating hormone [Recovering/Resolving]
  - Dry mouth [Recovering/Resolving]
  - Hypertension [Recovering/Resolving]
  - Sleep disorder [Recovering/Resolving]
  - Depression [Recovering/Resolving]

NARRATIVE: CASE EVENT DATE: 20170818
